FAERS Safety Report 7244944-4 (Version None)
Quarter: 2011Q1

REPORT INFORMATION
  Report Type: 
  Country: None (occurrence: None)
  Receive Date: 20110126
  Receipt Date: 20110118
  Transmission Date: 20110831
  Serious: Yes (Other)
  Sender: FDA-Public Use
  Company Number: US-BAYER-2011-007526

PATIENT
  Sex: Female

DRUGS (6)
  1. OCELLA [Suspect]
     Dosage: UNK
     Dates: start: 20071101, end: 20090401
  2. YAZ [Suspect]
     Indication: PRODUCT USED FOR UNKNOWN INDICATION
     Dosage: UNK
     Dates: start: 20031101, end: 20041101
  3. YASMIN [Suspect]
     Dosage: UNK
     Dates: start: 20071101, end: 20090401
  4. YASMIN [Suspect]
     Indication: PRODUCT USED FOR UNKNOWN INDICATION
     Dosage: UNK
     Dates: start: 20031101, end: 20041101
  5. OCELLA [Suspect]
     Indication: PRODUCT USED FOR UNKNOWN INDICATION
     Dosage: UNK
     Dates: start: 20031101, end: 20041101
  6. YAZ [Suspect]
     Dosage: UNK
     Dates: start: 20071101, end: 20090401

REACTIONS (3)
  - EMOTIONAL DISTRESS [None]
  - CHOLELITHIASIS [None]
  - PAIN [None]
